FAERS Safety Report 7082580-3 (Version None)
Quarter: 2010Q3

REPORT INFORMATION
  Report Type: 
  Country: None (occurrence: None)
  Receive Date: 20100929
  Receipt Date: 20100622
  Transmission Date: 20110219
  Serious: Yes (Other)
  Sender: FDA-Public Use
  Company Number: US-WYE-H15809210

PATIENT
  Sex: Male

DRUGS (1)
  1. PRISTIQ [Suspect]

REACTIONS (6)
  - APATHY [None]
  - ASTHENIA [None]
  - COORDINATION ABNORMAL [None]
  - DRUG INEFFECTIVE [None]
  - FEELING ABNORMAL [None]
  - NAUSEA [None]
